FAERS Safety Report 13419156 (Version 2)
Quarter: 2017Q2

REPORT INFORMATION
  Report Type: Spontaneous
  Country: ES (occurrence: ES)
  Receive Date: 20170407
  Receipt Date: 20170413
  Transmission Date: 20170830
  Serious: Yes (Other)
  Sender: FDA-Public Use
  Company Number: ES-BEH-2017079356

PATIENT
  Age: 57 Year
  Sex: Female

DRUGS (3)
  1. HUMAN IMMUNOGLOBULIN (NC) [Suspect]
     Active Substance: HUMAN IMMUNOGLOBULIN G
     Indication: CHRONIC INFLAMMATORY DEMYELINATING POLYRADICULONEUROPATHY
     Dosage: 500 MG/KG, QD FOR 4 DAYS EACH MONTH
     Route: 042
  2. AZATHIOPRINE. [Concomitant]
     Active Substance: AZATHIOPRINE
     Indication: CHRONIC INFLAMMATORY DEMYELINATING POLYRADICULONEUROPATHY
     Route: 065
  3. DEFLAZACORT [Concomitant]
     Active Substance: DEFLAZACORT
     Indication: CHRONIC INFLAMMATORY DEMYELINATING POLYRADICULONEUROPATHY
     Dosage: 6 MG/24 HOURS
     Route: 065

REACTIONS (7)
  - Face oedema [Recovered/Resolved]
  - Cervix oedema [Recovered/Resolved]
  - Deep vein thrombosis [Recovered/Resolved]
  - Superior vena cava stenosis [Recovering/Resolving]
  - Device related thrombosis [Recovered/Resolved]
  - Superior vena cava syndrome [Recovered/Resolved]
  - Superior vena cava occlusion [Recovered/Resolved]
